FAERS Safety Report 16926275 (Version 1)
Quarter: 2019Q4

REPORT INFORMATION
  Report Type: Spontaneous
  Country: NL (occurrence: NL)
  Receive Date: 20191016
  Receipt Date: 20191016
  Transmission Date: 20200122
  Serious: Yes (Disabling, Other)
  Sender: FDA-Public Use
  Company Number: NL-NOVOPROD-689252

PATIENT
  Age: 68 Year
  Sex: Male
  Weight: 110 kg

DRUGS (12)
  1. THYRAX DUO [Concomitant]
     Active Substance: LEVOTHYROXINE SODIUM
     Dosage: 50 ?G, QD
  2. OZEMPIC [Suspect]
     Active Substance: SEMAGLUTIDE
     Indication: TYPE 2 DIABETES MELLITUS
     Dosage: 1 DF, QW
     Route: 058
     Dates: start: 20190508, end: 20190820
  3. DIGOXINE [Concomitant]
     Active Substance: DIGOXIN
     Dosage: UNK
  4. EDOXABAN [Concomitant]
     Active Substance: EDOXABAN TOSYLATE
     Dosage: UNK
  5. METFORMIN [Concomitant]
     Active Substance: METFORMIN HYDROCHLORIDE
     Dosage: 1000 MG (12 HOURS)
  6. EPLERENON 1A PHARMA [Concomitant]
     Dosage: UNK
  7. CLINDAMYCINE-300 [Concomitant]
     Dosage: 600 MG (8 HOURS)
     Dates: start: 20190820
  8. METOPROLOL. [Concomitant]
     Active Substance: METOPROLOL
     Dosage: UNK
  9. CIPROXIN [CIPROFLOXACIN HYDROCHLORIDE] [Concomitant]
     Active Substance: CIPROFLOXACIN HYDROCHLORIDE
     Dosage: 500 MG (12 HOURS)
     Dates: start: 20190820
  10. FOSINOPRIL [Concomitant]
     Active Substance: FOSINOPRIL
     Dosage: 40 MG, QD
  11. TOUJEO [Concomitant]
     Active Substance: INSULIN GLARGINE
     Dosage: UNK
  12. GLICLAZIDE [Concomitant]
     Active Substance: GLICLAZIDE
     Dosage: 60 MG, QD

REACTIONS (4)
  - Blister rupture [Recovering/Resolving]
  - Osteomyelitis [Recovering/Resolving]
  - Diabetic foot [Recovering/Resolving]
  - Blister [Recovering/Resolving]

NARRATIVE: CASE EVENT DATE: 20190509
